FAERS Safety Report 25279706 (Version 1)
Quarter: 2025Q2

REPORT INFORMATION
  Report Type: Spontaneous
  Country: US (occurrence: US)
  Receive Date: 20250507
  Receipt Date: 20250507
  Transmission Date: 20250716
  Serious: No
  Sender: MYLAN
  Company Number: US-MYLANLABS-2025M1033750

PATIENT
  Age: 89 Year
  Sex: Female

DRUGS (1)
  1. NORVASC [Suspect]
     Active Substance: AMLODIPINE BESYLATE
     Indication: Product used for unknown indication
     Dosage: 5 MILLIGRAM, QD (AT DAY TIME)

REACTIONS (7)
  - Cardiac discomfort [Unknown]
  - Illness [Unknown]
  - Visual impairment [Unknown]
  - Hypoacusis [Unknown]
  - Headache [Unknown]
  - Dizziness [Unknown]
  - Product solubility abnormal [Unknown]
